FAERS Safety Report 11293897 (Version 2)
Quarter: 2015Q3

REPORT INFORMATION
  Report Type: Report from Study
  Country: BR (occurrence: BR)
  Receive Date: 20150722
  Receipt Date: 20150902
  Transmission Date: 20151125
  Serious: Yes (Life-Threatening, Hospitalization)
  Sender: FDA-Public Use
  Company Number: PHHY2015BR087238

PATIENT
  Sex: Female
  Weight: 53 kg

DRUGS (2)
  1. EXJADE [Suspect]
     Active Substance: DEFERASIROX
     Indication: BONE MARROW FAILURE
     Dosage: 6 DF, QD (IN THE MORNING)
     Route: 065
  2. CORTICORTEN [Concomitant]
     Indication: PRODUCT USED FOR UNKNOWN INDICATION
     Route: 065

REACTIONS (10)
  - Ocular hyperaemia [Unknown]
  - Blood glucose increased [Unknown]
  - Platelet count decreased [Unknown]
  - Malaise [Unknown]
  - Diarrhoea [Unknown]
  - Haemoglobin decreased [Unknown]
  - Dizziness [Unknown]
  - Abasia [Unknown]
  - Haemorrhage [Unknown]
  - Cerebrovascular accident [Unknown]
